FAERS Safety Report 12590641 (Version 2)
Quarter: 2016Q3

REPORT INFORMATION
  Report Type: Spontaneous
  Country: FR (occurrence: FR)
  Receive Date: 20160726
  Receipt Date: 20160805
  Transmission Date: 20161109
  Serious: Yes (Hospitalization)
  Sender: FDA-Public Use
  Company Number: FR-ROCHE-1800394

PATIENT
  Age: 4 Year
  Sex: Male
  Weight: 15 kg

DRUGS (12)
  1. ASPEGIC [Concomitant]
     Active Substance: ASPIRIN DL-LYSINE
     Route: 048
     Dates: start: 20141209, end: 20141215
  2. FUNGIZONE [Concomitant]
     Active Substance: AMPHOTERICIN B
     Route: 048
     Dates: start: 20141207
  3. CELLCEPT [Concomitant]
     Active Substance: MYCOPHENOLATE MOFETIL\MYCOPHENOLATE MOFETIL HYDROCHLORIDE
     Route: 048
     Dates: start: 20141208
  4. ROVALCYTE [Suspect]
     Active Substance: VALGANCICLOVIR HYDROCHLORIDE
     Indication: ANTIVIRAL PROPHYLAXIS
     Route: 048
     Dates: start: 20141208, end: 20141211
  5. BACTRIM [Suspect]
     Active Substance: SULFAMETHOXAZOLE\TRIMETHOPRIM
     Indication: ANTIBIOTIC PROPHYLAXIS
     Route: 048
     Dates: start: 20141207, end: 20141211
  6. ASPEGIC [Concomitant]
     Active Substance: ASPIRIN DL-LYSINE
     Route: 048
     Dates: start: 20141227
  7. ENALAPRIL [Concomitant]
     Active Substance: ENALAPRIL
     Route: 048
     Dates: start: 20141210
  8. LOVENOX [Suspect]
     Active Substance: ENOXAPARIN SODIUM
     Indication: THROMBOSIS PROPHYLAXIS
     Route: 058
     Dates: start: 20141207, end: 20141213
  9. EUPANTOL [Suspect]
     Active Substance: PANTOPRAZOLE SODIUM
     Indication: PROPHYLAXIS AGAINST GASTROINTESTINAL ULCER
     Route: 048
     Dates: start: 20141209, end: 20141214
  10. NEORAL [Concomitant]
     Active Substance: CYCLOSPORINE
     Route: 048
     Dates: start: 20141207
  11. PHOSPHONEUROS [Concomitant]
     Active Substance: CALCIUM PHOSPHATE, DIBASIC, ANHYDROUS\MAGNESIUM GLYCEROPHOSPHATE\PHOSPHORIC ACID\SODIUM PHOSPHATE, DIBASIC
     Route: 048
     Dates: start: 20141210, end: 20141214
  12. AMLODIPINE [Concomitant]
     Active Substance: AMLODIPINE BESYLATE
     Route: 048
     Dates: start: 20141208

REACTIONS (1)
  - Hepatocellular injury [Recovered/Resolved]

NARRATIVE: CASE EVENT DATE: 20141210
